FAERS Safety Report 5740580-7 (Version None)
Quarter: 2008Q2

REPORT INFORMATION
  Report Type: 
  Country: None (occurrence: None)
  Receive Date: 20080516
  Receipt Date: 20080505
  Transmission Date: 20081010
  Serious: Yes (Hospitalization, Congenital Anomaly)
  Sender: FDA-Public Use
  Company Number: A0662910A

PATIENT
  Sex: Female

DRUGS (21)
  1. PAXIL CR [Suspect]
     Indication: BIPOLAR DISORDER
     Dosage: 25MG PER DAY
     Dates: start: 20050901, end: 20051001
  2. AMBIEN [Concomitant]
     Indication: INSOMNIA
     Dosage: 10MG PER DAY
     Dates: start: 20050101
  3. HYDROCODONE BITARTRATE [Concomitant]
     Indication: ARTHRITIS
     Dosage: 500MG AS REQUIRED
     Dates: start: 20050608
  4. VITAMIN TAB [Concomitant]
     Indication: PREGNANCY
     Dates: start: 19930101, end: 20061001
  5. PRENATE [Concomitant]
     Dates: start: 20050701, end: 20060801
  6. XANAX [Concomitant]
     Indication: ANXIETY
     Dosage: .25MG AS REQUIRED
     Dates: start: 20051206, end: 20051220
  7. AMOXICILLIN [Concomitant]
     Indication: INFECTION
     Dates: start: 20051130
  8. ALBUTEROL [Concomitant]
     Indication: ASTHMA
     Dosage: 90MCG AS REQUIRED
     Dates: start: 20050101
  9. LEXAPRO [Concomitant]
     Indication: DEPRESSION
     Dates: start: 20050101
  10. CEPHALEXIN [Concomitant]
     Dates: start: 20050608
  11. FLONASE [Concomitant]
     Dates: start: 20050608
  12. ABILIFY [Concomitant]
     Dates: start: 20050609
  13. LUNESTA [Concomitant]
     Dosage: 3MG PER DAY
     Dates: start: 20050610
  14. DEPAKOTE ER [Concomitant]
     Indication: BIPOLAR DISORDER
     Dates: start: 20050623
  15. LOXAPINE [Concomitant]
     Dates: start: 20050624
  16. METOCLOPRAMIDE [Concomitant]
     Dates: start: 20050630
  17. PROMETHAZINE [Concomitant]
     Dosage: 25MG PER DAY
     Dates: start: 20051017
  18. APAP W/ CODEINE [Concomitant]
     Dosage: 30MG PER DAY
     Dates: start: 20051103
  19. MEDICATION FOR HIGH BLOOD PRESSURE [Concomitant]
  20. FISH OIL [Concomitant]
     Dosage: 1000MG PER DAY
  21. SEROQUEL [Concomitant]
     Dates: start: 20050101

REACTIONS (7)
  - ATRIAL SEPTAL DEFECT [None]
  - CARDIAC MURMUR [None]
  - CARDIOMEGALY [None]
  - CONGENITAL ANOMALY [None]
  - DRUG EXPOSURE DURING PREGNANCY [None]
  - PULMONARY ARTERY STENOSIS CONGENITAL [None]
  - TRICUSPID VALVE INCOMPETENCE [None]
